FAERS Safety Report 8583963-2 (Version None)
Quarter: 2012Q3

REPORT INFORMATION
  Report Type: 
  Country: None (occurrence: None)
  Receive Date: 20120810
  Receipt Date: 20120717
  Transmission Date: 20120928
  Serious: No
  Sender: FDA-Public Use
  Company Number: US-009507513-1207USA007091

PATIENT

DRUGS (8)
  1. ACETAMINOPHEN/HYDROCODONE BITARTRATE [Concomitant]
     Dosage: 2.5-3.25
  2. REBETOL [Suspect]
     Dosage: 200 MG, UNK
  3. TELAPREVIR [Suspect]
     Dosage: 375 MG, UNK
  4. MAGNESIA [MILK OF] [Concomitant]
  5. AMITIZA [Concomitant]
     Dosage: 8 MICROGRAM, UNK
  6. PEG-INTRON [Suspect]
     Dosage: REDIPEN,150 MICROGRAM PER 0.5 ML ,4 SYRINGE PER PACK
     Route: 058
  7. ETODOLAC [Concomitant]
     Dosage: 400 MG, UNK
  8. ALKA-SELTZER [Concomitant]

REACTIONS (6)
  - OCULAR HYPERAEMIA [None]
  - PYREXIA [None]
  - ABDOMINAL PAIN [None]
  - FATIGUE [None]
  - CONSTIPATION [None]
  - BONE PAIN [None]
